FAERS Safety Report 24045366 (Version 2)
Quarter: 2024Q3

REPORT INFORMATION
  Report Type: Spontaneous
  Country: CH (occurrence: CH)
  Receive Date: 20240703
  Receipt Date: 20240708
  Transmission Date: 20241016
  Serious: No
  Sender: BAUSCH AND LOMB
  Company Number: CH-CHEPLA-2024008208

PATIENT
  Age: 20 Year
  Sex: Male

DRUGS (17)
  1. HYDROCORTISONE [Suspect]
     Active Substance: HYDROCORTISONE\HYDROCORTISONE ACETATE
     Indication: Product used for unknown indication
     Route: 065
  2. VINCRISTINE [Concomitant]
     Active Substance: VINCRISTINE
     Indication: Osteosarcoma
     Dosage: EURO-EWING 99 PROTOCOL
  3. ACTINOMYCIN D [Concomitant]
     Active Substance: DACTINOMYCIN
     Indication: Osteosarcoma
     Dosage: EURO-EWING 99 PROTOCOL
  4. IFOSFAMIDE [Concomitant]
     Active Substance: IFOSFAMIDE
     Indication: Osteosarcoma
     Dosage: EURO-EWING 99 PROTOCOL
  5. IFOSFAMIDE [Concomitant]
     Active Substance: IFOSFAMIDE
  6. TEMODAL [Concomitant]
     Active Substance: TEMOZOLOMIDE
     Indication: Osteosarcoma
  7. IRINOTECAN [Concomitant]
     Active Substance: IRINOTECAN
     Indication: Osteosarcoma
  8. ETOPOSIDE [Concomitant]
     Active Substance: ETOPOSIDE
     Indication: Osteosarcoma
  9. METYRAPONE [Concomitant]
     Active Substance: METYRAPONE
     Indication: Cushing^s syndrome
  10. POTASSIUM [Concomitant]
     Active Substance: POTASSIUM
     Indication: Cushing^s syndrome
     Route: 048
  11. POTASSIUM [Concomitant]
     Active Substance: POTASSIUM
     Route: 051
  12. PENTAMIDINE [Concomitant]
     Active Substance: PENTAMIDINE
     Indication: Prophylaxis
  13. KETOCONAZOLE [Concomitant]
     Active Substance: KETOCONAZOLE
     Indication: Product used for unknown indication
  14. CEFTRIAXONE [Concomitant]
     Active Substance: CEFTRIAXONE\CEFTRIAXONE SODIUM
     Indication: Antibiotic therapy
  15. PIPERACILLIN SODIUM\TAZOBACTAM SODIUM [Concomitant]
     Active Substance: PIPERACILLIN SODIUM\TAZOBACTAM SODIUM
     Indication: Pneumocystis jirovecii infection
  16. CLARITHROMYCIN [Concomitant]
     Active Substance: CLARITHROMYCIN
     Indication: Pneumocystis jirovecii infection
  17. SULFAMETHOXAZOLE\TRIMETHOPRIM [Concomitant]
     Active Substance: SULFAMETHOXAZOLE\TRIMETHOPRIM
     Indication: Pneumocystis jirovecii infection

REACTIONS (2)
  - Agitation [Unknown]
  - Disease recurrence [Unknown]
